FAERS Safety Report 9280587 (Version 1)
Quarter: 2013Q2

REPORT INFORMATION
  Report Type: Spontaneous
  Country: JP (occurrence: None)
  Receive Date: 20130503
  Receipt Date: 20130503
  Transmission Date: 20140414
  Serious: Yes (Other)
  Sender: FDA-Public Use
  Company Number: SYM-2013-03197

PATIENT
  Age: 14 Year
  Sex: Male

DRUGS (2)
  1. FLUOROURACIL (FLUOROURACIL) (FLUOROURACIL) [Suspect]
     Indication: ASTROCYTOMA, LOW GRADE
     Dates: start: 1983
  2. NIMUSTINE HYDROCHLORIDE [Suspect]
     Indication: ASTROCYTOMA, LOW GRADE
     Dates: start: 1983

REACTIONS (2)
  - Oligoastrocytoma [None]
  - Tonic convulsion [None]
